FAERS Safety Report 5318788-4 (Version None)
Quarter: 2007Q2

REPORT INFORMATION
  Report Type: 
  Country: None (occurrence: None)
  Receive Date: 20070503
  Receipt Date: 20070417
  Transmission Date: 20071010
  Serious: Yes (Hospitalization)
  Sender: FDA-Public Use
  Company Number: DSA_29670_2007

PATIENT
  Age: 78 Year
  Sex: Female

DRUGS (5)
  1. MONO-TILDIEM (MONO-TILDIEM) [Suspect]
     Indication: ANGINA PECTORIS
     Dosage: (200 MG QD ORAL)
     Route: 048
     Dates: start: 20070227, end: 20070309
  2. KARDEGIC /00002703/ (KARDEGIC) (NOT SPECIFIED) [Suspect]
     Indication: ANGINA PECTORIS
     Dosage: (ORAL)
     Route: 048
     Dates: start: 20070227, end: 20070307
  3. OGAST (OGAST) [Suspect]
     Dosage: (ORAL)
     Route: 048
     Dates: start: 20070227, end: 20070312
  4. ESBERIVEN [Concomitant]
  5. AMLODIPINE [Concomitant]

REACTIONS (10)
  - ALANINE AMINOTRANSFERASE INCREASED [None]
  - ASPARTATE AMINOTRANSFERASE INCREASED [None]
  - CELLULITIS [None]
  - HYPERGAMMAGLOBULINAEMIA [None]
  - HYPERTHERMIA [None]
  - HYPONATRAEMIA [None]
  - PAROTITIS [None]
  - RESPIRATORY DISORDER [None]
  - SEPTIC SHOCK [None]
  - STEVENS-JOHNSON SYNDROME [None]
